FAERS Safety Report 4634769-8 (Version None)
Quarter: 2005Q2

REPORT INFORMATION
  Report Type: 
  Country: None (occurrence: None)
  Receive Date: 20050412
  Receipt Date: 20050412
  Transmission Date: 20051028
  Serious: No
  Sender: FDA-Public Use
  Company Number: None

PATIENT
  Sex: Male
  Weight: 63.9572 kg

DRUGS (1)
  1. FOSAMAX [Suspect]
     Indication: OSTEOPOROSIS
     Dosage: 70MG   ONCE WEEKLY  ORAL
     Route: 048
     Dates: start: 20040408, end: 20050408

REACTIONS (2)
  - ABDOMINAL DISCOMFORT [None]
  - GASTRITIS [None]
